FAERS Safety Report 9407405 (Version 1)
Quarter: 2013Q3

REPORT INFORMATION
  Report Type: Spontaneous
  Country: US (occurrence: US)
  Receive Date: 20130718
  Receipt Date: 20130718
  Transmission Date: 20140515
  Serious: Yes (Hospitalization)
  Sender: FDA-Public Use
  Company Number: US-PERRIGO-13US007171

PATIENT
  Sex: Male
  Weight: 94.33 kg

DRUGS (1)
  1. NICOTINE POLACRILEX REGULAR 2 MG 029 [Suspect]
     Indication: PRODUCT USED FOR UNKNOWN INDICATION
     Dosage: 10-60 PIECES, QD
     Route: 065
     Dates: end: 20130702

REACTIONS (11)
  - Overdose [Unknown]
  - Incoherent [Unknown]
  - Dehydration [Unknown]
  - Heat stroke [Unknown]
  - Unresponsive to stimuli [Unknown]
  - Organ failure [Unknown]
  - Blood test abnormal [Unknown]
  - Incorrect drug administration duration [Unknown]
  - Pain [Unknown]
  - Headache [Unknown]
  - Feeling hot [Unknown]
